FAERS Safety Report 5191791-3 (Version None)
Quarter: 2006Q4

REPORT INFORMATION
  Report Type: 
  Country: None (occurrence: None)
  Receive Date: 20061226
  Receipt Date: 20060928
  Transmission Date: 20070319
  Serious: Yes (Death, Hospitalization, Other)
  Sender: FDA-Public Use
  Company Number: FR-ELI_LILLY_AND_COMPANY-FR200609007313

PATIENT
  Age: 76 Year
  Sex: Female
  Weight: 61 kg

DRUGS (4)
  1. ZOFRAN [Concomitant]
     Indication: PROPHYLACTIC CHEMOTHERAPY
     Dosage: 4 MG, UNKNOWN
     Route: 042
     Dates: start: 20050928, end: 20060609
  2. LASIX [Concomitant]
     Indication: OEDEMA PERIPHERAL
     Dosage: 80 MG, DAILY (1/D)
     Route: 048
     Dates: start: 20050901
  3. LASIX [Concomitant]
     Dosage: 60 MG/M2, UNK
     Route: 048
     Dates: end: 20060801
  4. GEMZAR [Suspect]
     Indication: PANCREATIC CARCINOMA
     Dosage: 1000 MG/M2, OTHER
     Route: 042
     Dates: start: 20050928, end: 20060609

REACTIONS (6)
  - ANAEMIA [None]
  - DIARRHOEA [None]
  - GASTRIC ULCER HAEMORRHAGE [None]
  - NEUTROPENIA [None]
  - RENAL FAILURE ACUTE [None]
  - THROMBOCYTOPENIA [None]
